FAERS Safety Report 5107752-6 (Version None)
Quarter: 2006Q3

REPORT INFORMATION
  Report Type: 
  Country: None (occurrence: None)
  Receive Date: 20060914
  Receipt Date: 20060904
  Transmission Date: 20061208
  Serious: Yes (Other)
  Sender: FDA-Public Use
  Company Number: 2006087831

PATIENT
  Age: 61 Year
  Sex: Male

DRUGS (3)
  1. LYRICA [Suspect]
     Indication: PHANTOM PAIN
     Dosage: 600 MG (1 IN 1 D), ORAL
     Route: 048
     Dates: start: 20050221, end: 20060523
  2. CONTALGIN (MORPHINE SULFATE) [Concomitant]
  3. TEMGESIC ^SCHERING-PLOUGH^ (BUPRENORPHINE HYDROCHLORIDE) [Concomitant]

REACTIONS (2)
  - NEURALGIA [None]
  - SUICIDAL IDEATION [None]
